FAERS Safety Report 7467090-3 (Version None)
Quarter: 2011Q2

REPORT INFORMATION
  Report Type: 
  Country: None (occurrence: None)
  Receive Date: 20110509
  Receipt Date: 20101018
  Transmission Date: 20111010
  Serious: No
  Sender: FDA-Public Use
  Company Number: US-ALEXION-A201001329

PATIENT
  Sex: Female

DRUGS (12)
  1. CELEXA [Concomitant]
     Dosage: UNK
  2. VITAMIN K                          /00854101/ [Concomitant]
     Dosage: UNK
  3. FLUCONAZOLE [Concomitant]
     Dosage: UNK
  4. OXYCODONE [Concomitant]
     Dosage: UNK
  5. SOLIRIS [Suspect]
     Indication: PAROXYSMAL NOCTURNAL HAEMOGLOBINURIA
     Dosage: 900 MG, Q2W
     Route: 042
     Dates: start: 20081105
  6. SOLIRIS [Suspect]
     Dosage: 900 MG, Q2W
     Route: 042
     Dates: start: 20101001
  7. ZOFRAN [Concomitant]
     Dosage: UNK
  8. ATIVAN [Concomitant]
     Dosage: UNK
  9. ALBUTEROL [Concomitant]
     Dosage: UNK
  10. SOLIRIS [Suspect]
     Dosage: 600 MG Q1-2W
     Route: 042
     Dates: start: 20100915, end: 20101015
  11. AVELOX                             /01453201/ [Concomitant]
     Dosage: UNK
  12. FOLIC ACID [Concomitant]
     Dosage: UNK

REACTIONS (1)
  - URTICARIA [None]
